FAERS Safety Report 14528445 (Version 2)
Quarter: 2018Q4

REPORT INFORMATION
  Report Type: Report from Study
  Country: ES (occurrence: ES)
  Receive Date: 20180214
  Receipt Date: 20181029
  Transmission Date: 20190204
  Serious: Yes (Death, Hospitalization)
  Sender: FDA-Public Use
  Company Number: ES-IPSEN BIOPHARMACEUTICALS, INC.-2018-02357

PATIENT
  Age: 64 Year
  Sex: Female

DRUGS (11)
  1. LIPOSOMAL IRINOTECAN [Suspect]
     Active Substance: IRINOTECAN HYDROCHLORIDE
     Indication: COLORECTAL CANCER METASTATIC
     Dosage: 616 MG
     Route: 042
     Dates: start: 20171220, end: 20171220
  2. 5-FU [Suspect]
     Active Substance: FLUOROURACIL
     Indication: COLORECTAL CANCER METASTATIC
     Dosage: 616 MG
     Route: 042
     Dates: start: 20171220, end: 20171220
  3. LEUCOVORIN. [Suspect]
     Active Substance: LEUCOVORIN
     Indication: PRODUCT USED FOR UNKNOWN INDICATION
     Route: 042
  4. NOVORAPID [Concomitant]
     Active Substance: INSULIN ASPART
  5. DILTIAZEM. [Concomitant]
     Active Substance: DILTIAZEM
  6. LANTUS [Concomitant]
     Active Substance: INSULIN GLARGINE
  7. AFLIBERCEPT [Suspect]
     Active Substance: AFLIBERCEPT
     Indication: COLORECTAL CANCER METASTATIC
     Dosage: 232 MG
     Route: 042
     Dates: start: 20171220, end: 20171220
  8. LIPOSOMAL IRINOTECAN [Suspect]
     Active Substance: IRINOTECAN HYDROCHLORIDE
     Indication: OFF LABEL USE
  9. QUINAPRIL. [Concomitant]
     Active Substance: QUINAPRIL
  10. ATORVASTATIN [Concomitant]
     Active Substance: ATORVASTATIN
  11. 5-FU [Suspect]
     Active Substance: FLUOROURACIL
     Dosage: 3696 MG
     Route: 042
     Dates: start: 20171220, end: 20171220

REACTIONS (2)
  - Off label use [Unknown]
  - Gastrointestinal toxicity [Fatal]

NARRATIVE: CASE EVENT DATE: 20180102
